FAERS Safety Report 10625903 (Version 2)
Quarter: 2015Q1

REPORT INFORMATION
  Report Type: Spontaneous
  Country: IT (occurrence: IT)
  Receive Date: 20141204
  Receipt Date: 20150219
  Transmission Date: 20150720
  Serious: Yes (Hospitalization)
  Sender: FDA-Public Use
  Company Number: IT-PFIZER INC-2014330434

PATIENT
  Age: 47 Year
  Sex: Female

DRUGS (4)
  1. TRIATEC [Concomitant]
     Active Substance: RAMIPRIL
     Dosage: UNK
  2. LOBIVON [Concomitant]
     Active Substance: NEBIVOLOL HYDROCHLORIDE
     Dosage: UNK
  3. AZITHROMYCIN [Suspect]
     Active Substance: AZITHROMYCIN ANHYDROUS
     Dosage: 1 DF, DAILY
     Route: 048
     Dates: start: 20141129, end: 20141130
  4. ACETYLCYSTEIN [Suspect]
     Active Substance: ACETYLCYSTEINE
     Dosage: 1 DF, DAILY
     Route: 048
     Dates: start: 20141129, end: 20141130

REACTIONS (2)
  - Urticaria [Recovered/Resolved]
  - Lip oedema [Recovered/Resolved]

NARRATIVE: CASE EVENT DATE: 20141130
